FAERS Safety Report 4507432-1 (Version None)
Quarter: 2004Q4

REPORT INFORMATION
  Report Type: 
  Country: None (occurrence: None)
  Receive Date: 20041118
  Receipt Date: 20041104
  Transmission Date: 20050328
  Serious: Yes (Death)
  Sender: FDA-Public Use
  Company Number: 210098

PATIENT
  Age: 75 Year
  Sex: Male
  Weight: 100 kg

DRUGS (10)
  1. AVASTIN [Suspect]
     Indication: RENAL CELL CARCINOMA STAGE UNSPECIFIED
     Dosage: 10 MG/KG, Q2W, INTRAVENOUS
     Route: 042
     Dates: start: 20040712, end: 20040908
  2. INTERFERON ALFA-2B (INTERFERON ALFA-2B) [Suspect]
     Indication: RENAL CELL CARCINOMA STAGE UNSPECIFIED
     Dosage: 9 MIU, X3, SUBCUTANEOUS
     Route: 058
     Dates: start: 20040712, end: 20040908
  3. LOTREL (AMLODIPINE BESYLATE, BENAZEPRIL HYDROCHLORIDE) [Concomitant]
  4. METFORMIN HCL [Concomitant]
  5. NADOLOL [Concomitant]
  6. ALLOPURINOL [Concomitant]
  7. CARAFATE [Concomitant]
  8. NAPROSYN [Concomitant]
  9. ASPIRIN [Concomitant]
  10. FERROUS SULFATE TAB [Concomitant]

REACTIONS (16)
  - BLOOD PRESSURE SYSTOLIC INCREASED [None]
  - CARDIAC DISORDER [None]
  - CARDIOMEGALY [None]
  - CORONARY ARTERY ATHEROSCLEROSIS [None]
  - DIARRHOEA [None]
  - DYSPNOEA [None]
  - HAEMATOCRIT DECREASED [None]
  - HAEMOGLOBIN DECREASED [None]
  - HEPATIC CANCER METASTATIC [None]
  - NASAL CONGESTION [None]
  - PHARYNGOLARYNGEAL PAIN [None]
  - PLATELET COUNT DECREASED [None]
  - PROTEINURIA [None]
  - SUDDEN DEATH [None]
  - VIRAL INFECTION [None]
  - WHITE BLOOD CELL COUNT DECREASED [None]
